FAERS Safety Report 8809591 (Version 3)
Quarter: 2014Q2

REPORT INFORMATION
  Report Type: Report from Study
  Country: US (occurrence: US)
  Receive Date: 20120926
  Receipt Date: 20140407
  Transmission Date: 20141212
  Serious: Yes (Death)
  Sender: FDA-Public Use
  Company Number: US-ROCHE-1129485

PATIENT
  Sex: Female

DRUGS (5)
  1. HERCEPTIN [Suspect]
     Indication: BREAST CANCER
     Route: 042
  2. HERCEPTIN [Suspect]
     Indication: METASTASES TO LIVER
     Route: 042
     Dates: start: 20111026
  3. DECADRON [Concomitant]
     Route: 042
  4. BENADRYL (UNITED STATES) [Concomitant]
     Route: 042
  5. DILAUDID [Concomitant]
     Route: 042

REACTIONS (1)
  - Breast cancer metastatic [Fatal]
